FAERS Safety Report 8445243-5 (Version None)
Quarter: 2012Q2

REPORT INFORMATION
  Report Type: 
  Country: None (occurrence: None)
  Receive Date: 20120611
  Receipt Date: 20120531
  Transmission Date: 20120825
  Serious: Yes (Death, Hospitalization)
  Sender: FDA-Public Use
  Company Number: DSA_57721_2012

PATIENT
  Sex: Male
  Weight: 50.5 kg

DRUGS (6)
  1. ANTEBATE [Concomitant]
  2. DIFLUNISAL [Concomitant]
  3. LOCOID [Concomitant]
  4. PEGAPTANIB SODIUM (PEGAPTANIB SODIUM) [Suspect]
     Indication: DIABETIC RETINAL OEDEMA
     Dosage: DF
  5. JANUVIA [Concomitant]
  6. HIRUDOID [Concomitant]

REACTIONS (1)
  - CARDIAC FAILURE [None]
